FAERS Safety Report 7737746-3 (Version None)
Quarter: 2011Q3

REPORT INFORMATION
  Report Type: 
  Country: None (occurrence: None)
  Receive Date: 20110908
  Receipt Date: 20110905
  Transmission Date: 20111222
  Serious: Yes (Hospitalization, Other)
  Sender: FDA-Public Use
  Company Number: FR-TEVA-299396ISR

PATIENT
  Age: 48 Year
  Sex: Female

DRUGS (5)
  1. VINCRISTINE [Suspect]
     Indication: LYMPHOMA
     Route: 042
  2. DOXORUBICIN HCL [Suspect]
     Indication: LYMPHOMA
     Route: 042
  3. PREDNISOLONE [Suspect]
     Indication: LYMPHOMA
     Route: 042
  4. CYCLOPHOSPHAMIDE [Suspect]
     Indication: LYMPHOMA
     Route: 042
  5. RITUXIMAB [Suspect]
     Indication: LYMPHOMA
     Route: 042

REACTIONS (5)
  - PANCYTOPENIA [None]
  - PULMONARY NECROSIS [None]
  - MEDICAL DEVICE COMPLICATION [None]
  - PLEURAL EFFUSION [None]
  - SYSTEMIC INFLAMMATORY RESPONSE SYNDROME [None]
